FAERS Safety Report 22797213 (Version 2)
Quarter: 2024Q3

REPORT INFORMATION
  Report Type: Spontaneous
  Country: ES (occurrence: ES)
  Receive Date: 20230808
  Receipt Date: 20240801
  Transmission Date: 20241016
  Serious: Yes (Death, Other)
  Sender: AUROBINDO
  Company Number: ES-AEMPS-340160

PATIENT
  Age: 82 Year
  Sex: Female

DRUGS (5)
  1. MEMANTINE [Interacting]
     Active Substance: MEMANTINE
     Indication: Product used for unknown indication
     Dosage: 20 MILLIGRAM, ONCE A DAY
     Route: 048
     Dates: start: 20150101, end: 20170616
  2. METFORMIN [Interacting]
     Active Substance: METFORMIN HYDROCHLORIDE
     Indication: Product used for unknown indication
     Dosage: 0-1/2-1
     Route: 048
     Dates: start: 20150101, end: 20170616
  3. GALANTAMINE HYDROBROMIDE [Interacting]
     Active Substance: GALANTAMINE HYDROBROMIDE
     Indication: Product used for unknown indication
     Dosage: 16 MILLIGRAM, ONCE A DAY
     Route: 048
     Dates: start: 20150101, end: 20170616
  4. METFORMIN HYDROCHLORIDE\VILDAGLIPTIN [Interacting]
     Active Substance: METFORMIN HYDROCHLORIDE\VILDAGLIPTIN
     Indication: Product used for unknown indication
     Dosage: 16 MILLIGRAM
     Route: 048
     Dates: start: 20150101, end: 20170616
  5. LOSARTAN [Concomitant]
     Active Substance: LOSARTAN
     Indication: Product used for unknown indication
     Dosage: 100 MILLIGRAM, ONCE A DAY
     Route: 048
     Dates: start: 20150101

REACTIONS (2)
  - Inappropriate antidiuretic hormone secretion [Fatal]
  - Drug interaction [Fatal]

NARRATIVE: CASE EVENT DATE: 20170610
